FAERS Safety Report 9157617 (Version 2)
Quarter: 2013Q2

REPORT INFORMATION
  Report Type: Spontaneous
  Country: US (occurrence: US)
  Receive Date: 20130312
  Receipt Date: 20130412
  Transmission Date: 20140414
  Serious: Yes (Hospitalization)
  Sender: FDA-Public Use
  Company Number: US-PFIZER INC-2013081183

PATIENT
  Age: 78 Year
  Sex: Male
  Weight: 74.4 kg

DRUGS (3)
  1. NORVASC [Suspect]
     Dosage: 5 MG, 1X/DAY
  2. AVAPRO [Concomitant]
     Indication: BLOOD PRESSURE ABNORMAL
     Dosage: 300 MG, 1X/DAY
  3. PLAVIX [Concomitant]
     Dosage: UNK

REACTIONS (1)
  - Cerebrovascular accident [Recovered/Resolved]
